FAERS Safety Report 4561134-4 (Version None)
Quarter: 2005Q1

REPORT INFORMATION
  Report Type: 
  Country: None (occurrence: None)
  Receive Date: 20050126
  Receipt Date: 20040227
  Transmission Date: 20050727
  Serious: Yes (Hospitalization)
  Sender: FDA-Public Use
  Company Number: PHBS2004CL02819

PATIENT
  Age: 70 Year
  Sex: Female

DRUGS (1)
  1. FEMARA [Suspect]
     Indication: BREAST CANCER
     Route: 048
     Dates: start: 20031201, end: 20040201

REACTIONS (7)
  - ANAEMIA [None]
  - APATHY [None]
  - ASTHENIA [None]
  - FEELING ABNORMAL [None]
  - HAEMATOCRIT DECREASED [None]
  - THYROID DISORDER [None]
  - URINARY TRACT INFECTION [None]
